FAERS Safety Report 7956898-3 (Version None)
Quarter: 2011Q4

REPORT INFORMATION
  Report Type: 
  Country: None (occurrence: None)
  Receive Date: 20111205
  Receipt Date: 20111128
  Transmission Date: 20120403
  Serious: Yes (Other)
  Sender: FDA-Public Use
  Company Number: GB-B.I. PHARMACEUTICALS,INC./RIDGEFIELD-2011-UK-01296UK

PATIENT
  Age: 11 Year
  Sex: Male

DRUGS (3)
  1. CLONIDINE [Suspect]
     Indication: SLEEP DISORDER
     Dosage: 25 MCG
     Route: 048
     Dates: start: 20110930, end: 20111009
  2. RISPERIDONE [Concomitant]
  3. LEVOTHYROXINE SODIUM [Concomitant]

REACTIONS (1)
  - PERIORBITAL OEDEMA [None]
